FAERS Safety Report 8219921-7 (Version None)
Quarter: 2012Q1

REPORT INFORMATION
  Report Type: 
  Country: None (occurrence: None)
  Receive Date: 20120319
  Receipt Date: 20120310
  Transmission Date: 20120608
  Serious: Yes (Life-Threatening)
  Sender: FDA-Public Use
  Company Number: IT-ALEXION PHARMACEUTICALS INC.-A201200472

PATIENT
  Sex: Male

DRUGS (2)
  1. SOLIRIS [Suspect]
     Dosage: 1500 MG, UNK
     Route: 042
     Dates: start: 20110414
  2. SOLIRIS [Suspect]
     Indication: MALIGNANT ATROPHIC PAPULOSIS
     Dosage: 900 MG, QW
     Route: 042
     Dates: start: 20110310, end: 20110401

REACTIONS (3)
  - SEPSIS [None]
  - SKIN LESION [None]
  - CENTRAL NERVOUS SYSTEM LESION [None]
